FAERS Safety Report 6009161-4 (Version None)
Quarter: 2008Q4

REPORT INFORMATION
  Report Type: 
  Country: None (occurrence: None)
  Receive Date: 20081216
  Receipt Date: 20081204
  Transmission Date: 20090506
  Serious: Yes (Hospitalization)
  Sender: FDA-Public Use
  Company Number: 231816K08USA

PATIENT
  Age: 39 Year
  Sex: Female
  Weight: 59 kg

DRUGS (7)
  1. REBIF [Suspect]
     Indication: MULTIPLE SCLEROSIS
     Dosage: 44 MCG, 3 IN 1 WEEKS, SUBCUTANEOUS, 44 MCG, 3 IN 1 WEEKS, SUBCUTANEOUS
     Route: 058
     Dates: start: 20080618, end: 20081001
  2. REBIF [Suspect]
     Indication: MULTIPLE SCLEROSIS
     Dosage: 44 MCG, 3 IN 1 WEEKS, SUBCUTANEOUS, 44 MCG, 3 IN 1 WEEKS, SUBCUTANEOUS
     Route: 058
     Dates: start: 20081101
  3. OXYCODONE HCL [Concomitant]
  4. CYMBALTA [Concomitant]
  5. NEURONTIN [Concomitant]
  6. PROTONIX [Concomitant]
  7. FLOMAX (MORNIFLUMATE) [Concomitant]

REACTIONS (5)
  - ABDOMINAL PAIN UPPER [None]
  - DISEASE RECURRENCE [None]
  - MENINGITIS VIRAL [None]
  - RED BLOOD CELL COUNT DECREASED [None]
  - WHITE BLOOD CELL COUNT ABNORMAL [None]
